FAERS Safety Report 9886726 (Version 2)
Quarter: 2014Q2

REPORT INFORMATION
  Report Type: Spontaneous
  Country: US (occurrence: US)
  Receive Date: 20140210
  Receipt Date: 20140513
  Transmission Date: 20141212
  Serious: No
  Sender: FDA-Public Use
  Company Number: US-GILEAD-2014-0094041

PATIENT
  Sex: Female

DRUGS (3)
  1. LETAIRIS [Suspect]
     Indication: CORONARY ARTERY DISEASE
     Dosage: 5 MG, QD
     Route: 065
     Dates: start: 20130924
  2. LETAIRIS [Suspect]
     Indication: PULMONARY HYPERTENSION
  3. ADCIRCA [Concomitant]

REACTIONS (2)
  - Myalgia [Unknown]
  - Oedema peripheral [Unknown]
